FAERS Safety Report 25775436 (Version 1)
Quarter: 2025Q3

REPORT INFORMATION
  Report Type: Spontaneous
  Country: US (occurrence: US)
  Receive Date: 20250909
  Receipt Date: 20250909
  Transmission Date: 20251021
  Serious: Yes (Hospitalization, Other)
  Sender: ABBVIE
  Company Number: US-ABBVIE-6444716

PATIENT
  Age: 43 Year
  Sex: Female

DRUGS (7)
  1. VRAYLAR [Suspect]
     Active Substance: CARIPRAZINE
     Indication: Product used for unknown indication
     Route: 048
  2. MIFEPRISTONE [Suspect]
     Active Substance: MIFEPRISTONE
     Indication: Product used for unknown indication
     Route: 065
     Dates: start: 20250525
  3. MIFEPRISTONE [Suspect]
     Active Substance: MIFEPRISTONE
     Indication: Product used for unknown indication
     Route: 065
     Dates: start: 20250625
  4. MIFEPRISTONE [Suspect]
     Active Substance: MIFEPRISTONE
     Indication: Product used for unknown indication
     Route: 065
     Dates: start: 20250807
  5. AMLODIPINE [Concomitant]
     Active Substance: AMLODIPINE BESYLATE
     Indication: Product used for unknown indication
  6. KORLYM [Concomitant]
     Active Substance: MIFEPRISTONE
     Indication: Product used for unknown indication
  7. KORLYM [Concomitant]
     Active Substance: MIFEPRISTONE
     Indication: Product used for unknown indication
     Dates: end: 20250807

REACTIONS (6)
  - Liver disorder [Unknown]
  - Weight increased [Not Recovered/Not Resolved]
  - Oedema peripheral [Not Recovered/Not Resolved]
  - Hepatic haemorrhage [Recovered/Resolved]
  - Hepatic haemorrhage [Unknown]
  - Hepatic haematoma [Recovered/Resolved]

NARRATIVE: CASE EVENT DATE: 20250101
